FAERS Safety Report 8756441 (Version 2)
Quarter: 2012Q4

REPORT INFORMATION
  Report Type: Spontaneous
  Country: JP (occurrence: None)
  Receive Date: 20120813
  Receipt Date: 20120816
  Transmission Date: 20130627
  Serious: Yes (Hospitalization)
  Sender: FDA-Public Use
  Company Number: 2012MPI00346

PATIENT
  Age: 33 Year
  Sex: Female

DRUGS (2)
  1. BRENTUXIMAB VEDOTIN [Suspect]
     Indication: LYMPHOMA
     Dosage: q21d
     Route: 041
     Dates: start: 20120402, end: 20120720
  2. CELESTAMINE [Suspect]
     Indication: DRUG USE FOR UNKNOWN INDICATION
     Route: 048
     Dates: start: 20120718, end: 20120720

REACTIONS (11)
  - Pneumocystis jiroveci pneumonia [None]
  - Rash [None]
  - Neutrophil count decreased [None]
  - Eosinophilic pneumonia [None]
  - Blood lactate dehydrogenase increased [None]
  - Bacterial infection [None]
  - Headache [None]
  - Meningitis viral [None]
  - Pleural effusion [None]
  - Neoplasm [None]
  - Bone marrow failure [None]
